FAERS Safety Report 9331985 (Version 4)
Quarter: 2013Q4

REPORT INFORMATION
  Report Type: Spontaneous
  Country: US (occurrence: US)
  Receive Date: 20130605
  Receipt Date: 20131211
  Transmission Date: 20140711
  Serious: Yes (Hospitalization)
  Sender: FDA-Public Use
  Company Number: US-B.I. PHARMACEUTICALS,INC./RIDGEFIELD-2013-BI-15789BP

PATIENT
  Age: 62 Year
  Sex: Male
  Weight: 95.25 kg

DRUGS (7)
  1. PRADAXA [Suspect]
     Indication: ATRIAL FIBRILLATION
     Dosage: 300 MG
     Dates: start: 20110801, end: 20110802
  2. LIPITOR [Concomitant]
     Dosage: 10 MG
     Route: 048
  3. NORVASC [Concomitant]
     Dosage: 10 MG
     Route: 048
  4. TORPOL XL [Concomitant]
     Dosage: 200 MG
     Route: 048
     Dates: start: 2003
  5. DIOVAN [Concomitant]
     Dosage: 160 MG
     Route: 048
  6. POTASSIUM CHLORIDE [Concomitant]
     Dosage: 20 MEQ
     Route: 048
     Dates: start: 2003
  7. AMOXICILLIN [Concomitant]
     Dosage: 500 MG
     Route: 048

REACTIONS (1)
  - Gastrointestinal haemorrhage [Unknown]
